FAERS Safety Report 5909469-4 (Version None)
Quarter: 2008Q4

REPORT INFORMATION
  Report Type: 
  Country: None (occurrence: None)
  Receive Date: 20081006
  Receipt Date: 20080926
  Transmission Date: 20090506
  Serious: Yes (Other)
  Sender: FDA-Public Use
  Company Number: DE-PFIZER INC-2008082437

PATIENT
  Age: 20 Year
  Sex: Female

DRUGS (5)
  1. DEPO-CLINOVIR [Suspect]
     Indication: CONTRACEPTION
     Route: 030
     Dates: start: 20080301, end: 20080301
  2. DEPO-CLINOVIR [Suspect]
     Route: 030
     Dates: start: 20080601, end: 20080601
  3. DEPO-CLINOVIR [Suspect]
     Route: 030
     Dates: start: 20080926, end: 20080926
  4. EBASTEL [Concomitant]
     Indication: ANTIALLERGIC THERAPY
  5. CLEMASTINE FUMARATE [Concomitant]
     Indication: ANTIALLERGIC THERAPY

REACTIONS (4)
  - EYE SWELLING [None]
  - LIP SWELLING [None]
  - SENSATION OF FOREIGN BODY [None]
  - URTICARIA [None]
